FAERS Safety Report 5990666-7 (Version None)
Quarter: 2008Q4

REPORT INFORMATION
  Report Type: 
  Country: None (occurrence: None)
  Receive Date: 20081211
  Receipt Date: 20081201
  Transmission Date: 20090506
  Serious: Yes (Hospitalization, Other)
  Sender: FDA-Public Use
  Company Number: PHHY2008FR30673

PATIENT
  Sex: Male

DRUGS (5)
  1. LEPONEX [Suspect]
     Dosage: 25 MG, BID
     Route: 048
     Dates: start: 20061201
  2. ESCITALOPRAM [Concomitant]
     Dosage: 10 MG, QD
     Route: 048
     Dates: start: 20061201
  3. MODOPAR [Concomitant]
     Dosage: 62.5 MG, BID
     Route: 048
  4. TRIVASTAL [Concomitant]
     Dosage: 50 MG, BID
     Route: 048
  5. PERGOLIDE MESYLATE [Concomitant]

REACTIONS (10)
  - AMIMIA [None]
  - CARDIAC MURMUR FUNCTIONAL [None]
  - CHEST PAIN [None]
  - DEEP VEIN THROMBOSIS [None]
  - EXTRAPYRAMIDAL DISORDER [None]
  - PAIN IN EXTREMITY [None]
  - PULMONARY EMBOLISM [None]
  - RESPIRATORY DISORDER [None]
  - SINUS TACHYCARDIA [None]
  - TREMOR [None]
